FAERS Safety Report 4561228-3 (Version None)
Quarter: 2005Q1

REPORT INFORMATION
  Report Type: 
  Country: None (occurrence: None)
  Receive Date: 20050121
  Receipt Date: 20050111
  Transmission Date: 20050727
  Serious: Yes (Death, Hospitalization)
  Sender: FDA-Public Use
  Company Number: 2005-BP-00222BP

PATIENT
  Age: 60 Year
  Sex: Female
  Weight: 58.2 kg

DRUGS (5)
  1. MICARDIS [Suspect]
     Indication: PROPHYLAXIS AGAINST TRANSPLANT REJECTION
     Dates: start: 20040728, end: 20041019
  2. MICARDIS [Suspect]
     Indication: PROPHYLAXIS AGAINST TRANSPLANT REJECTION
     Dates: start: 20040728, end: 20041019
  3. PROGRAF [Suspect]
     Indication: IMMUNOSUPPRESSION
     Dosage: 4 MG (1 MG)
     Dates: start: 20040415
  4. CELLCEPT [Suspect]
     Indication: IMMUNOSUPPRESSION
     Dosage: 2000 MG (250 MG)
     Dates: start: 20040415
  5. PREDNISONE [Suspect]
     Indication: IMMUNOSUPPRESSION
     Dosage: 10 MG (10 MG)
     Dates: start: 20040415

REACTIONS (24)
  - ANAEMIA [None]
  - ASTHENIA [None]
  - AZOTAEMIA [None]
  - CARDIO-RESPIRATORY ARREST [None]
  - CAROTID ARTERY STENOSIS [None]
  - CENTRAL LINE INFECTION [None]
  - COMA [None]
  - CYTOMEGALOVIRUS ANTIGEN POSITIVE [None]
  - EMBOLIC CEREBRAL INFARCTION [None]
  - ENCEPHALOPATHY [None]
  - ESCHERICHIA URINARY TRACT INFECTION [None]
  - FLUID OVERLOAD [None]
  - HAEMODIALYSIS [None]
  - HYPONATRAEMIA [None]
  - INFECTION [None]
  - INFECTION IN AN IMMUNOCOMPROMISED HOST [None]
  - LACUNAR INFARCTION [None]
  - MENTAL STATUS CHANGES [None]
  - PULSE ABSENT [None]
  - RENAL FAILURE ACUTE [None]
  - SEPSIS [None]
  - STAPHYLOCOCCAL BACTERAEMIA [None]
  - THROMBOCYTOPENIA [None]
  - UPPER GASTROINTESTINAL HAEMORRHAGE [None]
